FAERS Safety Report 20175525 (Version 2)
Quarter: 2022Q1

REPORT INFORMATION
  Report Type: Spontaneous
  Country: JP (occurrence: JP)
  Receive Date: 20211213
  Receipt Date: 20220202
  Transmission Date: 20220424
  Serious: Yes (Hospitalization, Other)
  Sender: FDA-Public Use
  Company Number: JP-GLAXOSMITHKLINE-JP2021JPN102799

PATIENT
  Age: 72 Year
  Sex: Male
  Weight: 54 kg

DRUGS (5)
  1. TRELEGY ELLIPTA [Suspect]
     Active Substance: FLUTICASONE FUROATE\UMECLIDINIUM BROMIDE\VILANTEROL TRIFENATATE
     Indication: Asthma-chronic obstructive pulmonary disease overlap syndrome
     Dosage: 100 ?G, QD, 1 INHALATION
     Route: 055
     Dates: start: 20190926
  2. EQUA TABLETS [Concomitant]
     Indication: Diabetes mellitus
     Dosage: 50 MG, BID
     Route: 048
     Dates: start: 20150902
  3. GLICLAZIDE [Concomitant]
     Active Substance: GLICLAZIDE
     Indication: Diabetes mellitus
     Dosage: 10 MG, QD
     Route: 048
     Dates: start: 20180418
  4. MICARDIS [Concomitant]
     Active Substance: TELMISARTAN
     Indication: Hypertension
     Dosage: 40 MG, QD
     Route: 048
     Dates: start: 20170208
  5. ROZEREM TABLETS [Concomitant]
     Indication: Insomnia
     Dosage: 8 MG, QD
     Route: 048
     Dates: start: 20131125

REACTIONS (5)
  - Pyrexia [Recovered/Resolved]
  - Pleurisy [Recovered/Resolved]
  - Chest pain [Recovered/Resolved]
  - Pneumonia [Recovered/Resolved]
  - Chills [Recovered/Resolved]

NARRATIVE: CASE EVENT DATE: 20200702
